FAERS Safety Report 23961914 (Version 1)
Quarter: 2024Q2

REPORT INFORMATION
  Report Type: Report from Study
  Country: US (occurrence: US)
  Receive Date: 20240611
  Receipt Date: 20240611
  Transmission Date: 20240715
  Serious: Yes (Hospitalization)
  Sender: FDA-Public Use
  Company Number: US-INSMED, INC.-2023-04371-US

PATIENT
  Age: 80 Year
  Sex: Female

DRUGS (1)
  1. ARIKAYCE [Suspect]
     Active Substance: AMIKACIN
     Indication: Mycobacterial infection
     Dosage: 590 MILLIGRAM, QD
     Route: 055
     Dates: end: 202312

REACTIONS (8)
  - Hospitalisation [Unknown]
  - Rehabilitation therapy [Unknown]
  - Aphonia [Recovering/Resolving]
  - Product preparation error [Unknown]
  - Therapy interrupted [Unknown]
  - Drug dose omission by device [Unknown]
  - Device issue [Unknown]
  - Accidental underdose [Unknown]

NARRATIVE: CASE EVENT DATE: 20231101
